FAERS Safety Report 26108757 (Version 1)
Quarter: 2025Q4

REPORT INFORMATION
  Report Type: Spontaneous
  Country: US (occurrence: US)
  Receive Date: 20251201
  Receipt Date: 20251201
  Transmission Date: 20260117
  Serious: Yes (Life-Threatening, Hospitalization)
  Sender: MYLAN
  Company Number: US-MYLANLABS-2025M1099601

PATIENT
  Age: 14 Year
  Sex: Female

DRUGS (12)
  1. ACETAMINOPHEN [Suspect]
     Active Substance: ACETAMINOPHEN
     Indication: Product used for unknown indication
     Dosage: 20 GRAM
  2. ACETAMINOPHEN [Suspect]
     Active Substance: ACETAMINOPHEN
     Dosage: 20 GRAM
     Route: 048
  3. ACETAMINOPHEN [Suspect]
     Active Substance: ACETAMINOPHEN
     Dosage: 20 GRAM
     Route: 048
  4. ACETAMINOPHEN [Suspect]
     Active Substance: ACETAMINOPHEN
     Dosage: 20 GRAM
  5. FOMEPIZOLE [Suspect]
     Active Substance: FOMEPIZOLE
     Indication: Overdose
     Dosage: FOUR DOSES
  6. FOMEPIZOLE [Suspect]
     Active Substance: FOMEPIZOLE
     Dosage: FOUR DOSES
     Route: 065
  7. FOMEPIZOLE [Suspect]
     Active Substance: FOMEPIZOLE
     Dosage: FOUR DOSES
     Route: 065
  8. FOMEPIZOLE [Suspect]
     Active Substance: FOMEPIZOLE
     Dosage: FOUR DOSES
  9. ACETYLCYSTEINE [Suspect]
     Active Substance: ACETYLCYSTEINE
     Indication: Overdose
     Dosage: UNK
  10. ACETYLCYSTEINE [Suspect]
     Active Substance: ACETYLCYSTEINE
     Dosage: UNK
     Route: 065
  11. ACETYLCYSTEINE [Suspect]
     Active Substance: ACETYLCYSTEINE
     Dosage: UNK
     Route: 065
  12. ACETYLCYSTEINE [Suspect]
     Active Substance: ACETYLCYSTEINE
     Dosage: UNK

REACTIONS (5)
  - Overdose [Unknown]
  - Toxicity to various agents [Unknown]
  - Drug-induced liver injury [Unknown]
  - Encephalopathy [Unknown]
  - Drug ineffective [Unknown]
